FAERS Safety Report 6970489-2 (Version None)
Quarter: 2010Q3

REPORT INFORMATION
  Report Type: 
  Country: None (occurrence: None)
  Receive Date: 20100908
  Receipt Date: 20100826
  Transmission Date: 20110219
  Serious: Yes (Life-Threatening)
  Sender: FDA-Public Use
  Company Number: IT-GENZYME-POMP-1001079

PATIENT
  Sex: Male

DRUGS (6)
  1. MYOZYME [Suspect]
     Indication: GLYCOGEN STORAGE DISEASE TYPE II
     Dosage: 150 MG, UNK
     Route: 042
     Dates: start: 20100808, end: 20100822
  2. TRIMETON [Concomitant]
     Indication: PREMEDICATION
     Dosage: 5 MG, ONCE
     Route: 042
     Dates: start: 20100822, end: 20100822
  3. LANOXIN [Concomitant]
     Indication: PRODUCT USED FOR UNKNOWN INDICATION
     Dosage: 0.03 MG, QD
     Route: 048
     Dates: start: 20100108, end: 20100822
  4. BENTELAN [Concomitant]
     Indication: PREMEDICATION
     Dosage: 1.5 MG, ONCE
     Route: 042
     Dates: start: 20100822, end: 20100822
  5. ANTRA [Concomitant]
     Indication: PROPHYLAXIS AGAINST GASTROINTESTINAL ULCER
     Dosage: 10 MG, UNK
     Route: 048
     Dates: start: 20100723, end: 20100822
  6. MYCOSTATIN [Concomitant]
     Indication: STOMATITIS
     Dosage: UNK UNK, UNK
     Route: 048
     Dates: start: 20100807, end: 20100822

REACTIONS (4)
  - BRADYCARDIA [None]
  - BRONCHOSPASM [None]
  - MUSCLE RIGIDITY [None]
  - RASH [None]
